FAERS Safety Report 14718329 (Version 3)
Quarter: 2018Q3

REPORT INFORMATION
  Report Type: Spontaneous
  Country: US (occurrence: US)
  Receive Date: 20180404
  Receipt Date: 20180925
  Transmission Date: 20181010
  Serious: No
  Sender: FDA-Public Use
  Company Number: US-SA-2018SA086854

PATIENT
  Age: 27 Year
  Sex: Female

DRUGS (4)
  1. DUPIXENT [Suspect]
     Active Substance: DUPILUMAB
     Dosage: 300 MG,QOW
     Route: 058
     Dates: start: 20180228
  2. AVIANE [Concomitant]
     Active Substance: ETHINYL ESTRADIOL\LEVONORGESTREL
  3. CLOBETASOL [Concomitant]
     Active Substance: CLOBETASOL
  4. EUCRISA [Concomitant]
     Active Substance: CRISABOROLE

REACTIONS (3)
  - Lymphadenopathy [Unknown]
  - Inappropriate schedule of drug administration [Unknown]
  - Liver disorder [Unknown]

NARRATIVE: CASE EVENT DATE: 20180319
